FAERS Safety Report 4932324-3 (Version None)
Quarter: 2006Q1

REPORT INFORMATION
  Report Type: 
  Country: None (occurrence: None)
  Receive Date: 20060301
  Receipt Date: 20060216
  Transmission Date: 20060701
  Serious: Yes (Other)
  Sender: FDA-Public Use
  Company Number: 13533

PATIENT

DRUGS (1)
  1. CYTARABINE [Suspect]

REACTIONS (1)
  - CEREBELLAR SYNDROME [None]
